FAERS Safety Report 9258605 (Version 2)
Quarter: 2013Q3

REPORT INFORMATION
  Report Type: Report from Study
  Country: DE (occurrence: DE)
  Receive Date: 20130426
  Receipt Date: 20130719
  Transmission Date: 20140515
  Serious: Yes (Hospitalization)
  Sender: FDA-Public Use
  Company Number: DE-ABBOTT-13P-062-1079548-00

PATIENT
  Age: 58 Year
  Sex: Female

DRUGS (6)
  1. HUMIRA [Suspect]
     Indication: PSORIASIS
     Route: 058
     Dates: start: 20130116, end: 20130313
  2. HUMIRA [Suspect]
     Indication: PSORIATIC ARTHROPATHY
  3. PREDNISOLONE [Concomitant]
     Indication: PSORIASIS
     Dosage: 5MG DAILY
  4. PREDNISOLONE [Concomitant]
     Indication: PSORIATIC ARTHROPATHY
  5. ARCOXIA [Concomitant]
     Indication: PSORIASIS
  6. ARCOXIA [Concomitant]
     Indication: PSORIATIC ARTHROPATHY

REACTIONS (4)
  - Joint swelling [Recovered/Resolved]
  - Psoriatic arthropathy [Recovered/Resolved]
  - Arthralgia [Recovered/Resolved]
  - General physical health deterioration [Recovered/Resolved]
